FAERS Safety Report 7748768-0 (Version None)
Quarter: 2011Q3

REPORT INFORMATION
  Report Type: 
  Country: None (occurrence: None)
  Receive Date: 20110913
  Receipt Date: 20110913
  Transmission Date: 20111222
  Serious: No
  Sender: FDA-Public Use
  Company Number: None

PATIENT
  Sex: Female
  Weight: 47.6277 kg

DRUGS (2)
  1. TOPAMAX [Suspect]
     Indication: CONVULSION
     Dosage: 125 MG BID PO
     Route: 048
     Dates: start: 20060101
  2. TOPAMAX [Suspect]
     Indication: MIGRAINE
     Dosage: 125 MG BID PO
     Route: 048
     Dates: start: 20060101

REACTIONS (2)
  - HEADACHE [None]
  - PRODUCT SUBSTITUTION ISSUE [None]
